FAERS Safety Report 18371981 (Version 1)
Quarter: 2020Q4

REPORT INFORMATION
  Report Type: Spontaneous
  Country: US (occurrence: US)
  Receive Date: 20201012
  Receipt Date: 20201012
  Transmission Date: 20210114
  Serious: No
  Sender: FDA-Public Use
  Company Number: US-P+L DEVELOPMENTS OF NEWYORK CORPORATION-2092668

PATIENT
  Age: 67 Year
  Sex: Female

DRUGS (1)
  1. LORATADINE. [Suspect]
     Active Substance: LORATADINE
     Indication: CHRONIC SPONTANEOUS URTICARIA
     Route: 065

REACTIONS (2)
  - Drug ineffective [Unknown]
  - Intentional product misuse [Unknown]
